FAERS Safety Report 11192748 (Version 1)
Quarter: 2015Q2

REPORT INFORMATION
  Report Type: Spontaneous
  Country: US (occurrence: None)
  Receive Date: 20150615
  Receipt Date: 20150615
  Transmission Date: 20150821
  Serious: Yes (Hospitalization)
  Sender: FDA-Public Use
  Company Number: None

PATIENT
  Age: 64 Year
  Sex: Female
  Weight: 84.8 kg

DRUGS (5)
  1. POTASSIUM [Concomitant]
     Active Substance: POTASSIUM
  2. REGLAN [Concomitant]
     Active Substance: METOCLOPRAMIDE HYDROCHLORIDE
  3. VERAPAMIL [Concomitant]
     Active Substance: VERAPAMIL HYDROCHLORIDE
  4. CARBOPLATIN. [Suspect]
     Active Substance: CARBOPLATIN
     Dates: end: 20120206
  5. TAXOL [Suspect]
     Active Substance: PACLITAXEL
     Dates: end: 20120213

REACTIONS (8)
  - Cough [None]
  - Feeling abnormal [None]
  - Dyspnoea [None]
  - Fatigue [None]
  - Asthenia [None]
  - Rash [None]
  - Pleural effusion [None]
  - Pyrexia [None]

NARRATIVE: CASE EVENT DATE: 20120216
